FAERS Safety Report 8507274-6 (Version None)
Quarter: 2012Q3

REPORT INFORMATION
  Report Type: 
  Country: None (occurrence: None)
  Receive Date: 20120712
  Receipt Date: 20120702
  Transmission Date: 20120928
  Serious: Yes (Other)
  Sender: FDA-Public Use
  Company Number: DE-FRI-1000036988

PATIENT
  Age: 75 Year
  Sex: Male
  Weight: 86 kg

DRUGS (11)
  1. ROFLUMILAST [Suspect]
     Indication: CHRONIC OBSTRUCTIVE PULMONARY DISEASE
     Dosage: 500 MCG
     Route: 048
     Dates: start: 20110615, end: 20120612
  2. PRAVASTATIN [Concomitant]
     Dosage: 40 MG
  3. NAPROXEN [Concomitant]
  4. BUDESONIDE [Concomitant]
     Dosage: 800 MCG
  5. XARELTO [Concomitant]
     Dosage: 20 MG
  6. TORASEMIDE [Concomitant]
     Dosage: 10 MG
  7. ALBUTEROL SULATE [Concomitant]
  8. SPIRIVA [Concomitant]
     Dosage: 18 MCG
  9. FORMATRIS [Concomitant]
  10. THEOPHYLLINE [Concomitant]
  11. CANDESARTAN CILEXETIL [Concomitant]

REACTIONS (8)
  - SECRETION DISCHARGE [None]
  - DYSPNOEA [None]
  - APPETITE DISORDER [None]
  - FATIGUE [None]
  - CARDIAC DISORDER [None]
  - BLOOD PRESSURE FLUCTUATION [None]
  - DIZZINESS [None]
  - SLEEP DISORDER [None]
